FAERS Safety Report 13175648 (Version 1)
Quarter: 2017Q1

REPORT INFORMATION
  Report Type: Spontaneous
  Country: US (occurrence: US)
  Receive Date: 20170201
  Receipt Date: 20170201
  Transmission Date: 20170428
  Serious: Yes (Other)
  Sender: FDA-Public Use
  Company Number: US-BAYER-2017-019550

PATIENT
  Sex: Female

DRUGS (1)
  1. MIRENA [Suspect]
     Active Substance: LEVONORGESTREL
     Indication: CONTRACEPTION
     Dosage: 20 MCG/24HR, CONT
     Route: 015
     Dates: start: 20160102, end: 20161202

REACTIONS (7)
  - Mood swings [None]
  - Hot flush [None]
  - Menstruation irregular [None]
  - Anxiety [None]
  - Genital haemorrhage [None]
  - Irritability [None]
  - Abdominal pain lower [None]
